FAERS Safety Report 10172005 (Version 2)
Quarter: 2014Q2

REPORT INFORMATION
  Report Type: Spontaneous
  Country: US (occurrence: US)
  Receive Date: 20140515
  Receipt Date: 20140526
  Transmission Date: 20141212
  Serious: Yes (Hospitalization)
  Sender: FDA-Public Use
  Company Number: US-TAKEDA-2014TUS003815

PATIENT
  Age: 56 Year
  Sex: Female
  Weight: 103.86 kg

DRUGS (11)
  1. BRINTELLIX [Suspect]
     Indication: DEPRESSION
     Dosage: 10 MG, QD
     Route: 048
     Dates: start: 20140418, end: 2014
  2. BRINTELLIX [Suspect]
     Indication: ANXIETY
  3. ADVAIR [Concomitant]
  4. ALBUTEROL                          /00139501/ [Concomitant]
  5. TRAMADOL [Concomitant]
  6. TOPAMAX [Concomitant]
     Indication: MIGRAINE
     Dosage: 200 MG, QD
     Route: 048
     Dates: start: 2010
  7. VERAPAMIL [Concomitant]
  8. NEURONTIN [Concomitant]
  9. LISOPRIL [Concomitant]
  10. MIRALAX                            /00754501/ [Concomitant]
  11. GABAPENTIN [Concomitant]
     Indication: NEURALGIA
     Dosage: 300 MG, TID
     Route: 048
     Dates: start: 2011

REACTIONS (3)
  - Chest pain [Recovered/Resolved]
  - Tardive dyskinesia [Recovered/Resolved]
  - Hallucination [Recovered/Resolved]
